FAERS Safety Report 22240948 (Version 1)
Quarter: 2023Q2

REPORT INFORMATION
  Report Type: Spontaneous
  Country: US (occurrence: US)
  Receive Date: 20230421
  Receipt Date: 20230421
  Transmission Date: 20230722
  Serious: No
  Sender: FDA-Public Use
  Company Number: US-MYLANLABS-2023M1034244

PATIENT
  Age: 70 Year
  Sex: Female

DRUGS (3)
  1. LATANOPROST [Suspect]
     Active Substance: LATANOPROST
     Indication: Product used for unknown indication
     Dosage: 1 GTT DROPS, QD (1 DROP PER EYE PER NIGHT)
     Route: 047
  2. LATANOPROST [Suspect]
     Active Substance: LATANOPROST
     Dosage: 1 GTT DROPS, QD (1 DROP PER EYE PER NIGHT)
     Route: 047
  3. LATANOPROST [Suspect]
     Active Substance: LATANOPROST
     Dosage: 1 GTT DROPS, QD (1 DROP PER EYE PER NIGHT)
     Route: 047

REACTIONS (2)
  - Product storage error [Unknown]
  - Product label issue [Unknown]

NARRATIVE: CASE EVENT DATE: 20230328
